FAERS Safety Report 10633517 (Version 1)
Quarter: 2014Q4

REPORT INFORMATION
  Report Type: Spontaneous
  Country: TR (occurrence: TR)
  Receive Date: 20141205
  Receipt Date: 20141205
  Transmission Date: 20150529
  Serious: Yes (Hospitalization)
  Sender: FDA-Public Use
  Company Number: TR-ABBVIE-14P-161-1314610-00

PATIENT
  Age: 60 Year
  Sex: Male

DRUGS (2)
  1. VALPROIC ACID. [Suspect]
     Active Substance: VALPROIC ACID
     Route: 065
  2. VALPROIC ACID. [Suspect]
     Active Substance: VALPROIC ACID
     Indication: IDIOPATHIC GENERALISED EPILEPSY
     Route: 065

REACTIONS (13)
  - Dizziness [Recovered/Resolved]
  - Encephalopathy [Recovered/Resolved]
  - Abnormal behaviour [Recovered/Resolved]
  - Sluggishness [Recovered/Resolved]
  - Somnolence [Recovered/Resolved]
  - Nervousness [Recovered/Resolved]
  - Fatigue [Recovered/Resolved]
  - Hypotension [Recovered/Resolved]
  - Electroencephalogram abnormal [Recovered/Resolved]
  - Slow speech [Recovered/Resolved]
  - Balance disorder [Recovered/Resolved]
  - Hyperammonaemia [Recovered/Resolved]
  - Ataxia [Recovered/Resolved]
